FAERS Safety Report 5607609-8 (Version None)
Quarter: 2008Q1

REPORT INFORMATION
  Report Type: 
  Country: None (occurrence: None)
  Receive Date: 20080128
  Receipt Date: 20080128
  Transmission Date: 20080703
  Serious: Yes (Other)
  Sender: FDA-Public Use
  Company Number: None

PATIENT
  Age: 56 Year
  Sex: Male
  Weight: 69.8539 kg

DRUGS (3)
  1. ELITEK [Suspect]
     Indication: NON-HODGKIN'S LYMPHOMA
     Dosage: 9 MG X1 IV
     Route: 042
  2. ELITEK [Suspect]
     Indication: PROPHYLAXIS
     Dosage: 9 MG X1 IV
     Route: 042
  3. ELITEK [Suspect]
     Indication: TUMOUR LYSIS SYNDROME
     Dosage: 9 MG X1 IV
     Route: 042

REACTIONS (2)
  - METHAEMOGLOBINAEMIA [None]
  - RESPIRATORY DISTRESS [None]
